FAERS Safety Report 26206699 (Version 1)
Quarter: 2025Q4

REPORT INFORMATION
  Report Type: Spontaneous
  Country: CN (occurrence: CN)
  Receive Date: 20251229
  Receipt Date: 20251229
  Transmission Date: 20260118
  Serious: Yes (Other)
  Sender: BAXTER
  Company Number: None

PATIENT
  Age: 65 Year
  Sex: Female
  Weight: 51 kg

DRUGS (4)
  1. CYCLOPHOSPHAMIDE [Suspect]
     Active Substance: CYCLOPHOSPHAMIDE
     Indication: Breast cancer female
     Dosage: 0.8 G, QD, ST (600MG/M2) (D1)
     Route: 042
     Dates: start: 20251212, end: 20251212
  2. DEXTROSE [Suspect]
     Active Substance: DEXTROSE MONOHYDRATE
     Dosage: 30 ML, QD (ST) (CYCLOPHOSPHAMIDE + 5% GLUCOSE)
     Route: 042
     Dates: start: 20251212, end: 20251212
  3. DEXTROSE [Suspect]
     Active Substance: DEXTROSE MONOHYDRATE
     Dosage: 250 ML, QD (ST) (DOCETAXEL + 5% GLUCOSE)
     Route: 041
     Dates: start: 20251212, end: 20251212
  4. DOCETAXEL [Suspect]
     Active Substance: DOCETAXEL
     Indication: Breast cancer female
     Dosage: 100 MG, QD (ST) (75MG/M2) (D1)
     Route: 041
     Dates: start: 20251212, end: 20251212

REACTIONS (3)
  - White blood cell count decreased [Unknown]
  - Granulocytopenia [Unknown]
  - Granulocyte count decreased [Unknown]

NARRATIVE: CASE EVENT DATE: 20251219
